FAERS Safety Report 13280409 (Version 1)
Quarter: 2017Q1

REPORT INFORMATION
  Report Type: Spontaneous
  Country: US (occurrence: US)
  Receive Date: 20170228
  Receipt Date: 20170228
  Transmission Date: 20170428
  Serious: Yes (Other)
  Sender: FDA-Public Use
  Company Number: None

PATIENT
  Age: 85 Year
  Sex: Male

DRUGS (6)
  1. FINASTERIDE. [Concomitant]
     Active Substance: FINASTERIDE
  2. LEVOFLOXACIN. [Suspect]
     Active Substance: LEVOFLOXACIN
     Indication: PNEUMONIA
     Dosage: ?          QUANTITY:1 TABLET(S);?
     Route: 048
  3. TAMSULOSIN [Concomitant]
     Active Substance: TAMSULOSIN
  4. PROPAFENONE. [Concomitant]
     Active Substance: PROPAFENONE
  5. DAILY VITAMIN [Concomitant]
     Active Substance: VITAMINS
  6. ASA [Concomitant]
     Active Substance: ASPIRIN

REACTIONS (2)
  - Tendon rupture [None]
  - Pain [None]

NARRATIVE: CASE EVENT DATE: 20170217
